FAERS Safety Report 8792442 (Version 1)
Quarter: 2012Q4

REPORT INFORMATION
  Report Type: 
  Country: DE (occurrence: DE)
  Receive Date: 20120918
  Receipt Date: 20120918
  Transmission Date: 20130627
  Serious: Yes (Life-Threatening, Hospitalization)
  Sender: FDA-Public Use
  Company Number: GXKR2012DE002941

PATIENT

DRUGS (17)
  1. METFORMIN [Suspect]
     Indication: TYPE 2 DIABETES MELLITUS
     Dosage: 850 mg, BID
     Route: 048
     Dates: start: 20120201
  2. METFORMIN [Suspect]
     Dosage: daily dose: 500 Mg milligram(s) every Day
     Route: 048
     Dates: start: 20110111
  3. L-THYROXINE [Concomitant]
     Route: 048
  4. ALLOPURINOL [Concomitant]
     Dosage: 100 mg, QD
     Route: 048
  5. DETRUSITOL [Concomitant]
     Dosage: 2 mg, BID
     Route: 048
  6. TEBONIN [Concomitant]
     Dosage: 40 mg, BID
     Route: 048
  7. CAPTOPRIL [Concomitant]
     Dosage: 25 mg, BID
     Route: 048
  8. STILNOX                                 /FRA/ [Concomitant]
     Dosage: 1 DF, QD
     Route: 048
  9. REMERON [Concomitant]
     Dosage: 30 mg, QD
     Route: 048
  10. TOREM [Concomitant]
     Dosage: 5 mg, QD
     Route: 048
  11. AQUAPHOR                                /CAN/ [Concomitant]
     Dosage: 10 mg, QD
     Route: 048
  12. AMLODIPINE [Concomitant]
     Dosage: daily dose: 10 Mg milligram(s) every Day
     Route: 048
  13. ACETYLSALICYLIC ACID [Concomitant]
     Dosage: daily dose: 100 Mg milligram(s) every Day
     Route: 048
  14. PANTOZOL [Concomitant]
     Dosage: daily dose: 40 Mg milligram(s) every Day
     Route: 048
  15. BELOC-ZOC MITE [Concomitant]
     Dosage: daily dose: 1 Df dosage form every Day
     Route: 048
  16. NACOM ^DUPONT PHARMA^ [Concomitant]
     Dosage: daily dose: 2 Df dosage form every Day
     Route: 048
  17. CEFUROXIME [Concomitant]
     Dosage: daily dose: 1000 Mg milligram(s) every Day
     Route: 048
     Dates: start: 20111221

REACTIONS (5)
  - Atrioventricular block complete [Recovered/Resolved]
  - Lactic acidosis [Recovered/Resolved]
  - Renal failure acute [Recovered/Resolved]
  - Hyperkalaemia [Recovered/Resolved]
  - Drug level above therapeutic [Unknown]
